FAERS Safety Report 4771536-9 (Version None)
Quarter: 2005Q3

REPORT INFORMATION
  Report Type: 
  Country: None (occurrence: None)
  Receive Date: 20050913
  Receipt Date: 20050913
  Transmission Date: 20060218
  Serious: No
  Sender: FDA-Public Use
  Company Number: None

PATIENT
  Age: 33 Year
  Sex: Female
  Weight: 83.0083 kg

DRUGS (8)
  1. OXYCONTIN [Suspect]
     Dosage: #100 AND #50 3 QAM, 2 QPM
  2. DEMEROL [Concomitant]
  3. SEROQUEL [Concomitant]
  4. POTASSIUM CHLORIDE [Concomitant]
  5. CALCIUM GLUCONATE [Concomitant]
  6. NEURONTIN [Concomitant]
  7. MIRALAX [Concomitant]
  8. IMITREX [Concomitant]

REACTIONS (2)
  - DRUG EFFECT DECREASED [None]
  - PERITONSILLAR ABSCESS [None]
